FAERS Safety Report 5767549-0 (Version None)
Quarter: 2008Q2

REPORT INFORMATION
  Report Type: 
  Country: None (occurrence: None)
  Receive Date: 20080611
  Receipt Date: 20080611
  Transmission Date: 20081010
  Serious: Yes (Hospitalization)
  Sender: FDA-Public Use
  Company Number: None

PATIENT
  Age: 51 Year
  Sex: Female
  Weight: 77.2 kg

DRUGS (2)
  1. LORATADINE [Suspect]
     Indication: HYPERSENSITIVITY
     Dosage: 10 MG EVERY DAY PO
     Route: 048
     Dates: start: 20050602, end: 20080606
  2. ZOLPIDEM [Suspect]
     Indication: SLEEP DISORDER
     Dosage: 10 MG EVERY DAY PO
     Route: 048
     Dates: start: 20071119, end: 20080606

REACTIONS (2)
  - CONFUSIONAL STATE [None]
  - ILL-DEFINED DISORDER [None]
